FAERS Safety Report 9753580 (Version 2)
Quarter: 2013Q4

REPORT INFORMATION
  Report Type: Spontaneous
  Country: FR (occurrence: FR)
  Receive Date: 20131213
  Receipt Date: 20131223
  Transmission Date: 20140711
  Serious: No
  Sender: FDA-Public Use
  Company Number: FR-PFIZER INC-2013355108

PATIENT
  Age: 50 Year
  Sex: Male

DRUGS (10)
  1. PIPERACILLIN/TAZOBACTAM [Suspect]
     Indication: PYREXIA
     Dosage: UNK
     Dates: start: 20131001, end: 20131008
  2. MYLOTARG [Concomitant]
     Indication: ACUTE MYELOID LEUKAEMIA RECURRENT
     Dosage: 6 MG, CYCLIC ON DAY 1, DAY 4 AND DAY 7
     Route: 042
     Dates: start: 20131001, end: 20131007
  3. ARACYTINE [Concomitant]
     Indication: ACUTE MYELOID LEUKAEMIA RECURRENT
     Dosage: 400 MG, CYCLIC ON DAY 1 AND DAY 7
     Route: 042
     Dates: start: 20131001, end: 20131007
  4. DAUNORUBICIN [Concomitant]
     Indication: ACUTE MYELOID LEUKAEMIA RECURRENT
     Dosage: 120 MG, CYCLIC ON DAY 1 AND DAY 3
     Route: 042
     Dates: start: 20131001, end: 20131007
  5. HYDREA [Concomitant]
     Dosage: UNK
     Dates: start: 20130924
  6. DEXAMETHASONE [Concomitant]
     Dosage: UNK
     Dates: start: 20130924
  7. FASTURTEC [Concomitant]
     Indication: PROPHYLAXIS
     Dosage: UNK
     Dates: start: 20130924
  8. FORTUM [Concomitant]
     Indication: PYREXIA
     Dosage: UNK
     Dates: start: 20131001
  9. AMIKACIN [Concomitant]
     Indication: PYREXIA
     Dosage: UNK
     Dates: start: 20131001
  10. CASPOFUNGIN [Concomitant]
     Indication: PYREXIA
     Dosage: UNK
     Dates: start: 20131001

REACTIONS (1)
  - Drug eruption [Unknown]
